FAERS Safety Report 9675843 (Version 2)
Quarter: 2013Q4

REPORT INFORMATION
  Report Type: Report from Study
  Country: US (occurrence: US)
  Receive Date: 20131107
  Receipt Date: 20131204
  Transmission Date: 20140711
  Serious: Yes (Life-Threatening, Hospitalization)
  Sender: FDA-Public Use
  Company Number: US-GLAXOSMITHKLINE-A1048578A

PATIENT
  Age: 25 Year
  Sex: Female
  Weight: 74.9 kg

DRUGS (9)
  1. NELARABINE [Suspect]
     Indication: LYMPHOCYTIC LEUKAEMIA
     Dosage: 650MGM2 CYCLIC
     Route: 042
  2. CYCLOPHOSPHAMIDE [Suspect]
     Indication: LYMPHOCYTIC LEUKAEMIA
     Dosage: 1000MGM2 CYCLIC
     Route: 042
  3. CYTARABINE [Suspect]
     Indication: LYMPHOCYTIC LEUKAEMIA
     Dosage: 75MGM2 CYCLIC
  4. DEXAMETHASONE [Suspect]
     Indication: NON-HODGKIN^S LYMPHOMA
     Dosage: 5MGM2 CYCLIC
  5. DOXORUBICIN [Suspect]
     Indication: LYMPHOCYTIC LEUKAEMIA
     Dosage: 25MGM2 CYCLIC
     Route: 042
  6. METHOTREXATE [Suspect]
     Indication: LYMPHOCYTIC LEUKAEMIA
  7. PEG-ASPARAGINASE [Suspect]
     Indication: LYMPHOCYTIC LEUKAEMIA
  8. VINCRISTINE [Suspect]
     Indication: LYMPHOCYTIC LEUKAEMIA
     Dosage: 1.5MGM2 CYCLIC
     Route: 042
  9. RADIATION [Concomitant]
     Indication: NON-HODGKIN^S LYMPHOMA

REACTIONS (3)
  - Sepsis [Recovering/Resolving]
  - Enterocolitis [Recovering/Resolving]
  - Renal failure acute [Recovering/Resolving]
